FAERS Safety Report 10401786 (Version 1)
Quarter: 2014Q3

REPORT INFORMATION
  Report Type: Spontaneous
  Country: US (occurrence: None)
  Receive Date: 20140819
  Receipt Date: 20140819
  Transmission Date: 20150326
  Serious: Yes (Life-Threatening, Hospitalization, Disabling)
  Sender: FDA-Public Use
  Company Number: None

PATIENT
  Age: 83 Year
  Sex: Male
  Weight: 62.14 kg

DRUGS (1)
  1. ATOVASTATIN [Suspect]
     Active Substance: ATORVASTATIN
     Indication: BLOOD CHOLESTEROL INCREASED
     Dosage: RX 581 6249033?ONCE DAILY
     Dates: end: 20140415

REACTIONS (4)
  - Cardiac disorder [None]
  - Angiopathy [None]
  - Transient ischaemic attack [None]
  - Pain in extremity [None]

NARRATIVE: CASE EVENT DATE: 20140409
